FAERS Safety Report 5713131-0 (Version None)
Quarter: 2008Q2

REPORT INFORMATION
  Report Type: 
  Country: None (occurrence: None)
  Receive Date: 20080422
  Receipt Date: 20070918
  Transmission Date: 20081010
  Serious: No
  Sender: FDA-Public Use
  Company Number: US-BRISTOL-MYERS SQUIBB COMPANY-13912357

PATIENT
  Sex: Female
  Weight: 36 kg

DRUGS (7)
  1. DROXIA CAPS 200 MG [Suspect]
     Indication: THALASSAEMIA BETA
     Dosage: THE DOSAGE TITRATED TO CURRENT DOSAGE OF 400MG DAILY.
     Route: 048
     Dates: start: 20020101
  2. FOLIC ACID [Concomitant]
     Route: 048
  3. PEPCID [Concomitant]
     Route: 048
  4. LEVOXYL [Concomitant]
     Route: 048
  5. MAALOX [Concomitant]
  6. TYLENOL [Concomitant]
  7. IBUPROFEN [Concomitant]
     Dates: start: 19901201, end: 20060101

REACTIONS (4)
  - ABDOMINAL PAIN UPPER [None]
  - AMNESIA [None]
  - CHOLELITHIASIS [None]
  - DYSPEPSIA [None]
